FAERS Safety Report 25608785 (Version 1)
Quarter: 2025Q3

REPORT INFORMATION
  Report Type: Report from Study
  Country: EU (occurrence: EU)
  Receive Date: 20250726
  Receipt Date: 20250726
  Transmission Date: 20251020
  Serious: Yes (Congenital Anomaly)
  Sender: AUROBINDO
  Company Number: EU-TEVA-2018-NL-945631

PATIENT

DRUGS (1)
  1. PAROXETINE [Suspect]
     Active Substance: PAROXETINE
     Indication: Product used for unknown indication
     Route: 064

REACTIONS (3)
  - Aortic valve stenosis [Unknown]
  - Bicuspid aortic valve [Unknown]
  - Foetal exposure during pregnancy [Unknown]
